FAERS Safety Report 6069789-2 (Version None)
Quarter: 2009Q1

REPORT INFORMATION
  Report Type: 
  Country: None (occurrence: None)
  Receive Date: 20090204
  Receipt Date: 20090204
  Transmission Date: 20090719
  Serious: No
  Sender: FDA-Public Use
  Company Number: None

PATIENT
  Age: 3 Year
  Sex: Male
  Weight: 16.1027 kg

DRUGS (2)
  1. SINGULAIR [Suspect]
     Indication: ASTHMA
     Dosage: 4 MG 1 X DAY PO
     Route: 048
     Dates: start: 20081130, end: 20090203
  2. SINGULAIR [Suspect]
     Indication: MULTIPLE ALLERGIES
     Dosage: 4 MG 1 X DAY PO
     Route: 048
     Dates: start: 20081130, end: 20090203

REACTIONS (10)
  - ABNORMAL BEHAVIOUR [None]
  - AGGRESSION [None]
  - AGITATION [None]
  - ANXIETY [None]
  - CRYING [None]
  - HALLUCINATION, VISUAL [None]
  - IMPULSIVE BEHAVIOUR [None]
  - IRRITABILITY [None]
  - MOOD ALTERED [None]
  - RESTLESSNESS [None]
